FAERS Safety Report 8564781-8 (Version None)
Quarter: 2012Q3

REPORT INFORMATION
  Report Type: 
  Country: None (occurrence: None)
  Receive Date: 20120803
  Receipt Date: 20120725
  Transmission Date: 20120928
  Serious: No
  Sender: FDA-Public Use
  Company Number: US-US-EMD SERONO, INC.-7043502

PATIENT
  Sex: Female

DRUGS (2)
  1. REBIF [Suspect]
     Route: 058
     Dates: end: 20120523
  2. REBIF [Suspect]
     Indication: MULTIPLE SCLEROSIS
     Route: 058
     Dates: start: 20030915, end: 20110202

REACTIONS (3)
  - SECONDARY PROGRESSIVE MULTIPLE SCLEROSIS [None]
  - INSOMNIA [None]
  - INJECTION SITE PAIN [None]
